FAERS Safety Report 19180934 (Version 3)
Quarter: 2021Q3

REPORT INFORMATION
  Report Type: Spontaneous
  Country: US (occurrence: US)
  Receive Date: 20210426
  Receipt Date: 20210728
  Transmission Date: 20211014
  Serious: Yes (Other)
  Sender: FDA-Public Use
  Company Number: US-ANIPHARMA-2021-US-008208

PATIENT
  Age: 51 Year
  Sex: Female
  Weight: 70.76 kg

DRUGS (6)
  1. VITAMIN B12 [Concomitant]
     Active Substance: CYANOCOBALAMIN
  2. VITAMIN C [Concomitant]
     Active Substance: ASCORBIC ACID
  3. MULTIVITAMIN [Concomitant]
     Active Substance: VITAMINS
  4. PROPRANOLOL 60 MG EXTENDED RELEASE CAPSULES [Suspect]
     Active Substance: PROPRANOLOL HYDROCHLORIDE
     Indication: OPHTHALMIC MIGRAINE
     Dosage: ONCE DAILY; TOOK PRODUCT FOR UNSPECIFIED DURATION IN APPROXIMATELY 2014 AND DISCONTINUED, RESTARTED
     Route: 048
     Dates: start: 2014, end: 202103
  5. VITAMIN B6 [Concomitant]
     Active Substance: PYRIDOXINE HYDROCHLORIDE
  6. MAGNESIUM [Concomitant]
     Active Substance: MAGNESIUM

REACTIONS (16)
  - Dizziness [Recovered/Resolved]
  - Cardiac valve disease [Not Recovered/Not Resolved]
  - Feeling abnormal [Recovered/Resolved]
  - Hypertension [Recovered/Resolved]
  - Pharyngeal swelling [Recovered/Resolved]
  - Balance disorder [Recovered/Resolved]
  - Off label use [Recovered/Resolved]
  - Chest pain [Recovered/Resolved]
  - Dyspnoea [Recovered/Resolved]
  - Visual impairment [Recovered/Resolved]
  - Head discomfort [Recovered/Resolved]
  - Product substitution issue [Recovered/Resolved]
  - Condition aggravated [Recovered/Resolved]
  - Dysphagia [Recovered/Resolved]
  - Decreased activity [Recovered/Resolved]
  - Headache [Recovered/Resolved]

NARRATIVE: CASE EVENT DATE: 202007
